FAERS Safety Report 8611228-9 (Version None)
Quarter: 2012Q3

REPORT INFORMATION
  Report Type: 
  Country: None (occurrence: None)
  Receive Date: 20120822
  Receipt Date: 20120816
  Transmission Date: 20120928
  Serious: Yes (Other)
  Sender: FDA-Public Use
  Company Number: US-PFIZER INC-2012201001

PATIENT
  Age: 57 Year
  Sex: Male

DRUGS (8)
  1. COCAINE [Concomitant]
  2. THEOPHYLLINE [Concomitant]
     Dosage: UNK
  3. METHADONE [Concomitant]
     Dosage: UNK
  4. GLYBURIDE [Suspect]
     Dosage: UNK
  5. HYDROMORPHONE [Concomitant]
  6. CAFFEINE [Concomitant]
  7. NICOTINE [Concomitant]
  8. CLONAZEPAM [Concomitant]

REACTIONS (5)
  - MENTAL STATUS CHANGES [None]
  - TOXICITY TO VARIOUS AGENTS [None]
  - HYPOGLYCAEMIA [None]
  - CIRCULATORY COLLAPSE [None]
  - UNRESPONSIVE TO STIMULI [None]
